FAERS Safety Report 9240077 (Version 1)
Quarter: 2013Q2

REPORT INFORMATION
  Report Type: Spontaneous
  Country: US (occurrence: US)
  Receive Date: 20130418
  Receipt Date: 20130418
  Transmission Date: 20140414
  Serious: Yes (Other)
  Sender: FDA-Public Use
  Company Number: CHPA2013US006478

PATIENT
  Age: 43 Year
  Sex: Male

DRUGS (3)
  1. EXCEDRIN MIGRAINE [Suspect]
     Indication: MIGRAINE
     Dosage: 2-4 DF, PRN
     Route: 048
  2. EXCEDRIN EXTRA STRENGTH [Suspect]
     Indication: MIGRAINE
     Dosage: 2-4 DF, PRN
     Route: 048
  3. ZOMIG [Concomitant]
     Indication: MIGRAINE
     Route: 048

REACTIONS (1)
  - Multiple sclerosis [Not Recovered/Not Resolved]
